FAERS Safety Report 17136174 (Version 3)
Quarter: 2020Q1

REPORT INFORMATION
  Report Type: Spontaneous
  Country: US (occurrence: US)
  Receive Date: 20191210
  Receipt Date: 20200204
  Transmission Date: 20200409
  Serious: Yes (Other)
  Sender: FDA-Public Use
  Company Number: US-PFIZER INC-2019389574

PATIENT
  Age: 62 Year
  Sex: Male

DRUGS (2)
  1. DILANTIN [Suspect]
     Active Substance: PHENYTOIN
     Indication: EPILEPSY
     Dosage: 100 MG, 2X/DAY
     Route: 048
     Dates: start: 20140131, end: 20191206
  2. DILANTIN [Interacting]
     Active Substance: PHENYTOIN
     Indication: POST-TRAUMATIC EPILEPSY

REACTIONS (2)
  - Drug interaction [Unknown]
  - Hepatitis C [Unknown]
